FAERS Safety Report 5121367-5 (Version None)
Quarter: 2006Q4

REPORT INFORMATION
  Report Type: 
  Country: None (occurrence: None)
  Receive Date: 20061002
  Receipt Date: 20060920
  Transmission Date: 20070319
  Serious: Yes (Death, Life-Threatening, Hospitalization, Other)
  Sender: FDA-Public Use
  Company Number: US_0509122112

PATIENT
  Age: 31 Year
  Sex: Male
  Weight: 231.3 kg

DRUGS (6)
  1. ZYPREXA [Suspect]
     Indication: DEPRESSION
     Dosage: 10 MG, ORAL
     Route: 048
     Dates: start: 20040321, end: 20040321
  2. HALDOL [Concomitant]
  3. EFFEXOR [Concomitant]
  4. ASPIRIN [Concomitant]
  5. TYLENOL PM (DIPHENHYDRAMINE, PARACETAMOL) [Concomitant]
  6. PLASMA, FRESH FROZEN (PLASMA PROTEIN FRACTION (HUMAN)) INFUSION [Concomitant]

REACTIONS (33)
  - ACUTE RESPIRATORY DISTRESS SYNDROME [None]
  - BLOOD GLUCOSE DECREASED [None]
  - BLOOD POTASSIUM INCREASED [None]
  - CARDIAC ARREST [None]
  - CATATONIA [None]
  - DEPRESSED LEVEL OF CONSCIOUSNESS [None]
  - DISSEMINATED INTRAVASCULAR COAGULATION [None]
  - DRUG HYPERSENSITIVITY [None]
  - ENCEPHALOPATHY [None]
  - ESCHERICHIA INFECTION [None]
  - FOREIGN BODY ASPIRATION [None]
  - HAEMODIALYSIS [None]
  - HEPATIC FAILURE [None]
  - HYPERGLYCAEMIA [None]
  - HYPERTENSION [None]
  - HYPOTENSION [None]
  - KETONURIA [None]
  - LUNG INFILTRATION [None]
  - MENINGITIS [None]
  - METABOLIC ACIDOSIS [None]
  - MULTI-ORGAN FAILURE [None]
  - MULTIPLE DRUG OVERDOSE [None]
  - MYOCARDIAL INFARCTION [None]
  - NEUROLEPTIC MALIGNANT SYNDROME [None]
  - PNEUMONIA ASPIRATION [None]
  - PULMONARY OEDEMA [None]
  - RENAL FAILURE ACUTE [None]
  - RHABDOMYOLYSIS [None]
  - SEPSIS [None]
  - SPUTUM CULTURE POSITIVE [None]
  - STAPHYLOCOCCAL INFECTION [None]
  - SUICIDE ATTEMPT [None]
  - THROMBOCYTOPENIA [None]
